FAERS Safety Report 10547614 (Version 1)
Quarter: 2014Q4

REPORT INFORMATION
  Report Type: Spontaneous
  Country: US (occurrence: None)
  Receive Date: 20141010
  Receipt Date: 20141010
  Transmission Date: 20150529
  Serious: Yes (Other)
  Sender: FDA-Public Use
  Company Number: 163-POMAL-14060445

PATIENT
  Age: 64 Year
  Sex: Male
  Weight: 72.6 kg

DRUGS (6)
  1. CARAFATE (SUCRALFATE) [Concomitant]
  2. POMALYST [Suspect]
     Active Substance: POMALIDOMIDE
     Indication: PLASMA CELL MYELOMA
     Dosage: 4 MG, 21 IN 28 D, PO
     Dates: start: 20140322, end: 2014
  3. COLACE [Concomitant]
     Active Substance: DOCUSATE SODIUM
  4. PRILOSEC (OMEPRAZOLE) [Concomitant]
     Active Substance: OMEPRAZOLE MAGNESIUM
  5. ACYCLOVIR. [Concomitant]
     Active Substance: ACYCLOVIR
  6. DEXAMETHASONE. [Concomitant]
     Active Substance: DEXAMETHASONE

REACTIONS (3)
  - Anaemia [None]
  - Laboratory test abnormal [None]
  - Plasma cell myeloma [None]

NARRATIVE: CASE EVENT DATE: 2014
